FAERS Safety Report 5034120-8 (Version None)
Quarter: 2006Q2

REPORT INFORMATION
  Report Type: 
  Country: None (occurrence: None)
  Receive Date: 20060621
  Receipt Date: 20060609
  Transmission Date: 20061013
  Serious: Yes (Hospitalization)
  Sender: FDA-Public Use
  Company Number: 2006BI003862

PATIENT
  Age: 39 Year
  Sex: Male

DRUGS (1)
  1. AVONEX [Suspect]
     Indication: MULTIPLE SCLEROSIS
     Dosage: 30 UG;QW;IM
     Route: 030
     Dates: start: 20040401

REACTIONS (8)
  - ARTERIAL RUPTURE [None]
  - COMA [None]
  - GASTRIC ULCER HAEMORRHAGE [None]
  - JOINT DISLOCATION [None]
  - MULTI-ORGAN FAILURE [None]
  - PNEUMONIA [None]
  - PYLORIC ABSCESS [None]
  - RECTAL ULCER [None]
